FAERS Safety Report 10252353 (Version 1)
Quarter: 2014Q2

REPORT INFORMATION
  Report Type: Spontaneous
  Country: JP (occurrence: JP)
  Receive Date: 20140623
  Receipt Date: 20140623
  Transmission Date: 20141212
  Serious: Yes (Other)
  Sender: FDA-Public Use
  Company Number: JP-ASTELLAS-2014JP010198

PATIENT
  Age: 21 Year
  Sex: Female

DRUGS (6)
  1. FUNGUARD [Suspect]
     Indication: BRAIN ABSCESS
     Route: 065
  2. FUNGUARD [Suspect]
     Indication: ASPERGILLUS INFECTION
     Route: 041
  3. VFEND [Concomitant]
     Indication: BRAIN ABSCESS
     Route: 041
  4. VFEND [Concomitant]
     Indication: ASPERGILLUS INFECTION
     Route: 041
  5. VFEND [Concomitant]
     Indication: BRAIN ABSCESS
     Route: 048
  6. VFEND [Concomitant]
     Indication: ASPERGILLUS INFECTION

REACTIONS (1)
  - Drug-induced liver injury [Unknown]
